FAERS Safety Report 21097131 (Version 1)
Quarter: 2022Q3

REPORT INFORMATION
  Report Type: Spontaneous
  Country: US (occurrence: US)
  Receive Date: 20220719
  Receipt Date: 20220719
  Transmission Date: 20221027
  Serious: No
  Sender: FDA-Public Use
  Company Number: US-BRACCO-2021US01483

PATIENT
  Sex: Male

DRUGS (3)
  1. AXUMIN [Suspect]
     Active Substance: FLUCICLOVINE F-18
     Indication: Positron emission tomogram
     Dosage: 10 MCI
     Dates: start: 20210324, end: 20210324
  2. FINASTERIDE [Concomitant]
     Active Substance: FINASTERIDE
  3. LUPRON [Concomitant]
     Active Substance: LEUPROLIDE ACETATE
     Dosage: UNK
     Dates: start: 2021, end: 2021

REACTIONS (2)
  - Drug ineffective [Unknown]
  - False negative investigation result [Unknown]

NARRATIVE: CASE EVENT DATE: 20210324
